FAERS Safety Report 10470671 (Version 2)
Quarter: 2014Q3

REPORT INFORMATION
  Report Type: Spontaneous
  Country: US (occurrence: US)
  Receive Date: 20140923
  Receipt Date: 20140923
  Transmission Date: 20150326
  Serious: Yes (Death, Hospitalization)
  Sender: FDA-Public Use
  Company Number: US-GLAXOSMITHKLINE-A0836255A

PATIENT
  Sex: Male

DRUGS (1)
  1. AVANDIA [Suspect]
     Active Substance: ROSIGLITAZONE MALEATE
     Indication: TYPE 2 DIABETES MELLITUS
     Dosage: 8MG PER DAY
     Route: 065
     Dates: start: 20001019, end: 200605

REACTIONS (5)
  - Cor pulmonale [Unknown]
  - Acute respiratory failure [Fatal]
  - Pickwickian syndrome [Unknown]
  - Pneumothorax [Unknown]
  - Respiratory acidosis [Unknown]
